FAERS Safety Report 5908087-1 (Version None)
Quarter: 2008Q4

REPORT INFORMATION
  Report Type: 
  Country: None (occurrence: None)
  Receive Date: 20081003
  Receipt Date: 20080922
  Transmission Date: 20090506
  Serious: Yes (Other)
  Sender: FDA-Public Use
  Company Number: GR-PFIZER INC-2008079777

PATIENT
  Age: 65 Year
  Sex: Male

DRUGS (2)
  1. LYRICA [Suspect]
     Indication: TRIGEMINAL NEURALGIA
     Dosage: DAILY DOSE:300MG-FREQ:DAILY
     Route: 048
     Dates: start: 20080101
  2. NEURONTIN [Suspect]
     Indication: TRIGEMINAL NEURALGIA
     Dosage: DAILY DOSE:2400MG-FREQ:DAILY
     Route: 048
     Dates: start: 20080101

REACTIONS (1)
  - TRANSAMINASES INCREASED [None]
